FAERS Safety Report 5749935-8 (Version None)
Quarter: 2008Q2

REPORT INFORMATION
  Report Type: 
  Country: None (occurrence: None)
  Receive Date: 20080527
  Receipt Date: 20080521
  Transmission Date: 20081010
  Serious: Yes (Hospitalization)
  Sender: FDA-Public Use
  Company Number: US-ELI_LILLY_AND_COMPANY-US200805004401

PATIENT
  Sex: Female
  Weight: 104.31 kg

DRUGS (10)
  1. BYETTA [Suspect]
     Indication: TYPE 2 DIABETES MELLITUS
     Dosage: 5 UG, 2/D
     Route: 058
     Dates: start: 20060101, end: 20060101
  2. BYETTA [Suspect]
     Dosage: 10 UG, 2/D
     Route: 058
     Dates: start: 20060101, end: 20080401
  3. GLIMEPIRIDE [Concomitant]
     Indication: TYPE 2 DIABETES MELLITUS
     Dosage: 4 MG, DAILY (1/D)
     Route: 048
     Dates: end: 20080421
  4. GLIMEPIRIDE [Concomitant]
     Dosage: 4 MG, DAILY (1/D)
     Route: 048
     Dates: start: 20080401
  5. PLAVIX [Concomitant]
     Indication: PROPHYLAXIS
     Dates: start: 20020101
  6. SIMVASTATIN [Concomitant]
     Indication: BLOOD CHOLESTEROL INCREASED
     Dosage: 40 MG, DAILY (1/D)
     Route: 048
     Dates: start: 20020101
  7. BENICAR [Concomitant]
     Indication: HYPERTENSION
     Dosage: 20 MG, DAILY (1/D)
     Route: 048
  8. PAROXETINE HCL [Concomitant]
     Indication: SOCIAL PHOBIA
  9. COREG [Concomitant]
     Indication: HYPERTENSION
  10. PRILOSEC [Concomitant]
     Indication: PROPHYLAXIS

REACTIONS (3)
  - MONARTHRITIS [None]
  - PAIN [None]
  - ROTATOR CUFF SYNDROME [None]
